FAERS Safety Report 4410450-5 (Version None)
Quarter: 2004Q3

REPORT INFORMATION
  Report Type: 
  Country: None (occurrence: None)
  Receive Date: 20040728
  Receipt Date: 20040623
  Transmission Date: 20050211
  Serious: Yes (Hospitalization)
  Sender: FDA-Public Use
  Company Number: DE-MERCK-0406DEU00169

PATIENT
  Age: 73 Year
  Sex: Female
  Weight: 68 kg

DRUGS (6)
  1. ATORVASTATIN CALCIUM [Concomitant]
     Route: 065
     Dates: start: 20020201, end: 20020801
  2. CLOPIDOGREL BISULFATE [Concomitant]
     Route: 065
     Dates: start: 20020201, end: 20020701
  3. NISOLDIPINE [Concomitant]
     Route: 065
     Dates: start: 20020201
  4. RAMIPRIL [Suspect]
     Indication: CORONARY ARTERY DISEASE
     Route: 065
     Dates: start: 20020201, end: 20020701
  5. VIOXX [Suspect]
     Indication: NECK PAIN
     Route: 048
     Dates: start: 20020801, end: 20020801
  6. TORSEMIDE [Concomitant]
     Route: 065
     Dates: start: 20020201

REACTIONS (2)
  - DRUG INTERACTION [None]
  - HEPATITIS CHOLESTATIC [None]
